FAERS Safety Report 5393036-8 (Version None)
Quarter: 2007Q3

REPORT INFORMATION
  Report Type: 
  Country: None (occurrence: None)
  Receive Date: 20070719
  Receipt Date: 20070706
  Transmission Date: 20080115
  Serious: Yes (Life-Threatening, Hospitalization, Disabling)
  Sender: FDA-Public Use
  Company Number: SPV1-2007-03463

PATIENT
  Age: 38 Year
  Sex: Male

DRUGS (4)
  1. PENTASA [Suspect]
     Indication: CROHN'S DISEASE
     Dosage: 4 G DAILY, ORAL
     Route: 048
     Dates: start: 20070409, end: 20070517
  2. FERROUS SULFATE TAB [Suspect]
     Indication: ANAEMIA
     Dosage: 600 MG DAILY, ORAL
     Route: 048
     Dates: start: 20070409
  3. OMEPRAZOLE [Suspect]
     Indication: ABDOMINAL DISCOMFORT
     Dosage: 40 MG DIALY, ORAL
     Route: 048
     Dates: start: 20070409
  4. PREDNISOLONE [Suspect]
     Indication: CROHN'S DISEASE
     Dosage: ORAL
     Route: 048
     Dates: start: 20070409

REACTIONS (1)
  - NEUTROPENIA [None]
